FAERS Safety Report 9038366 (Version 1)
Quarter: 2013Q1

REPORT INFORMATION
  Report Type: Report from Study
  Country: US (occurrence: US)
  Receive Date: 20130130
  Receipt Date: 20130130
  Transmission Date: 20140127
  Serious: No
  Sender: FDA-Public Use
  Company Number: US-ABBOTT-12P-163-0950951-00

PATIENT
  Age: 28 Year
  Sex: Female

DRUGS (3)
  1. HUMIRA 40 MG/0.8 ML PEN [Suspect]
     Indication: CROHN^S DISEASE
     Dates: start: 20120530
  2. LEVOTHYROXINE [Concomitant]
     Indication: THYROID DISORDER
     Dosage: DAILY
     Route: 048
  3. PORTIA [Concomitant]
     Indication: CONTRACEPTION
     Dosage: DAILY
     Route: 048

REACTIONS (3)
  - Device malfunction [Unknown]
  - Incorrect dose administered [Unknown]
  - Injection site urticaria [Not Recovered/Not Resolved]
